FAERS Safety Report 4286948-X (Version None)
Quarter: 2004Q1

REPORT INFORMATION
  Report Type: 
  Country: None (occurrence: None)
  Receive Date: 20040206
  Receipt Date: 20011210
  Transmission Date: 20041129
  Serious: Yes (Other)
  Sender: FDA-Public Use
  Company Number: WAES 01120912

PATIENT
  Age: -365 Day
  Sex: Female
  Weight: 3 kg

DRUGS (3)
  1. FLOVENT [Concomitant]
     Dates: end: 20011207
  2. SINGULAIR [Suspect]
     Indication: ASTHMA
     Dates: start: 20011101, end: 20011207
  3. SEREVENT [Concomitant]
     Dates: end: 20011207

REACTIONS (2)
  - BREECH PRESENTATION [None]
  - MATERNAL DRUGS AFFECTING FOETUS [None]
